FAERS Safety Report 5139296-X (Version None)
Quarter: 2006Q4

REPORT INFORMATION
  Report Type: 
  Country: None (occurrence: None)
  Receive Date: 20061024
  Receipt Date: 20061013
  Transmission Date: 20070319
  Serious: Yes (Death)
  Sender: FDA-Public Use
  Company Number: 2006US002282

PATIENT
  Age: 51 Year
  Sex: Male

DRUGS (5)
  1. PROGRAF [Suspect]
     Dosage: 5 MG
  2. SIROLIMUS (SIROLIMUS) [Suspect]
     Indication: GRAFT VERSUS HOST DISEASE
     Dosage: 0.4 MG, UID/QD
  3. VORICONAZOLE (VORICONAZOLE) [Suspect]
     Indication: PNEUMONIA
     Dosage: 600 MG, UID/QD
  4. AMBISOME [Concomitant]
  5. FOSCARNET [Concomitant]

REACTIONS (3)
  - CYTOMEGALOVIRUS COLITIS [None]
  - PNEUMONIA STAPHYLOCOCCAL [None]
  - RENAL FAILURE ACUTE [None]
